FAERS Safety Report 7210140-X (Version None)
Quarter: 2011Q1

REPORT INFORMATION
  Report Type: 
  Country: None (occurrence: None)
  Receive Date: 20110105
  Receipt Date: 20101227
  Transmission Date: 20110831
  Serious: Yes (Hospitalization)
  Sender: FDA-Public Use
  Company Number: US-ELI_LILLY_AND_COMPANY-US201010001085

PATIENT
  Sex: Female

DRUGS (7)
  1. HTZ [Concomitant]
     Dosage: UNK, UNKNOWN
     Route: 065
  2. SYNTHROID [Concomitant]
     Dosage: UNK, UNKNOWN
     Route: 065
  3. NEXIUM [Concomitant]
     Dosage: UNK, UNKNOWN
     Route: 065
  4. PREDNISONE [Concomitant]
     Dosage: UNK, UNKNOWN
     Route: 065
  5. DIOVAN [Concomitant]
     Dosage: UNK, UNKNOWN
     Route: 065
  6. FORTEO [Suspect]
     Indication: OSTEOPOROSIS
     Dosage: 20 UG, DAILY (1/D)
     Route: 065
  7. DETROL LA [Concomitant]
     Dosage: UNK, UNKNOWN
     Route: 065

REACTIONS (8)
  - CYSTITIS [None]
  - SEPSIS [None]
  - HYPERHIDROSIS [None]
  - OEDEMA PERIPHERAL [None]
  - FEELING HOT [None]
  - HEART RATE IRREGULAR [None]
  - KIDNEY INFECTION [None]
  - CELLULITIS [None]
